FAERS Safety Report 10154683 (Version 1)
Quarter: 2014Q2

REPORT INFORMATION
  Report Type: Spontaneous
  Country: US (occurrence: None)
  Receive Date: 20140505
  Receipt Date: 20140505
  Transmission Date: 20141212
  Serious: Yes (Disabling)
  Sender: FDA-Public Use
  Company Number: None

PATIENT
  Age: 38 Year
  Sex: Female
  Weight: 58.97 kg

DRUGS (1)
  1. PARAGARD [Suspect]

REACTIONS (14)
  - Mental disorder [None]
  - Feeling abnormal [None]
  - Medical device complication [None]
  - Paranoia [None]
  - Anxiety [None]
  - Obsessive-compulsive disorder [None]
  - Depression [None]
  - Anger [None]
  - Irritability [None]
  - Feeling abnormal [None]
  - Panic attack [None]
  - Blood glucose fluctuation [None]
  - Palpitations [None]
  - Activities of daily living impaired [None]
